FAERS Safety Report 25013497 (Version 1)
Quarter: 2025Q1

REPORT INFORMATION
  Report Type: Spontaneous
  Country: ES (occurrence: ES)
  Receive Date: 20250226
  Receipt Date: 20250226
  Transmission Date: 20250409
  Serious: Yes (Life-Threatening, Hospitalization, Other)
  Sender: CHEPLAPHARM
  Company Number: None

PATIENT
  Age: 62 Year
  Sex: Female
  Weight: 60 kg

DRUGS (5)
  1. PREDNISONE [Interacting]
     Active Substance: PREDNISONE
     Indication: Renal transplant
     Dosage: DAILY DOSE: 5 MILLIGRAM
     Route: 048
     Dates: start: 202312
  2. PREDNISONE [Interacting]
     Active Substance: PREDNISONE
     Indication: Renal transplant
     Route: 048
  3. VALGANCICLOVIR [Suspect]
     Active Substance: VALGANCICLOVIR
     Indication: Cytomegalovirus infection
  4. MYCOPHENOLATE MOFETIL [Interacting]
     Active Substance: MYCOPHENOLATE MOFETIL
     Indication: Renal transplant
     Dosage: DAILY DOSE: 720 MILLIGRAM
     Route: 048
     Dates: start: 202312, end: 20240629
  5. TACROLIMUS [Interacting]
     Active Substance: TACROLIMUS
     Indication: Renal transplant
     Dosage: DAILY DOSE: 3 MILLIGRAM
     Route: 048
     Dates: start: 202312

REACTIONS (13)
  - Septic shock [Recovered/Resolved]
  - Renal graft infection [Recovered/Resolved]
  - Cardiac failure [Unknown]
  - Atrial fibrillation [Unknown]
  - Hypothyroidism [Unknown]
  - New onset diabetes after transplantation [Unknown]
  - Hypertension [Unknown]
  - Dyslipidaemia [Unknown]
  - Asthma [Unknown]
  - Fibromyalgia [Unknown]
  - Urinary tract infection [Unknown]
  - Abdominal distension [Unknown]
  - Orthopnoea [Unknown]

NARRATIVE: CASE EVENT DATE: 20240620
